FAERS Safety Report 7867360-0 (Version None)
Quarter: 2011Q4

REPORT INFORMATION
  Report Type: 
  Country: None (occurrence: None)
  Receive Date: 20111028
  Receipt Date: 20111017
  Transmission Date: 20120403
  Serious: Yes (Hospitalization)
  Sender: FDA-Public Use
  Company Number: PA-BRISTOL-MYERS SQUIBB COMPANY-16193161

PATIENT
  Age: 62 Year
  Sex: Male
  Weight: 81 kg

DRUGS (5)
  1. METFORMIN HCL [Suspect]
     Indication: DIABETES MELLITUS
     Route: 048
     Dates: start: 19960101
  2. SUNITINIB MALATE [Suspect]
     Indication: RENAL CELL CARCINOMA
     Route: 048
     Dates: start: 20060623, end: 20070402
  3. GLICLAZIDE [Suspect]
     Indication: DIABETES MELLITUS
     Route: 048
     Dates: start: 19960101
  4. OMEPRAZOLE [Concomitant]
  5. DILTIAZEM HCL [Concomitant]

REACTIONS (3)
  - HYPOGLYCAEMIA [None]
  - CLUTTERING [None]
  - DISORIENTATION [None]
